FAERS Safety Report 6543666-2 (Version None)
Quarter: 2010Q1

REPORT INFORMATION
  Report Type: 
  Country: None (occurrence: None)
  Receive Date: 20100120
  Receipt Date: 20100107
  Transmission Date: 20100710
  Serious: Yes (Other)
  Sender: FDA-Public Use
  Company Number: JP-BAYER-201011256GPV

PATIENT
  Age: 39 Year
  Sex: Male

DRUGS (4)
  1. DACARBAZINE [Suspect]
     Indication: HODGKIN'S DISEASE
     Dosage: 4 COURSES, 1-MONTH INTERVAL, OVER A PERIOD OF 3 MONTHS
  2. ADRIAMYCIN PFS [Suspect]
     Indication: HODGKIN'S DISEASE
     Dosage: 4 COURSES, 1-MONTH INTERVAL, OVER A PERIOD OF 3 MONTHS
  3. BLEOMYCIN SULFATE [Suspect]
     Indication: HODGKIN'S DISEASE
     Dosage: 4 COURSES, 1-MONTH INTERVAL, OVER A PERIOD OF 3 MONTHS
  4. VINBLASTINE [Suspect]
     Indication: HODGKIN'S DISEASE
     Dosage: 4 COURSES, 1-MONTH INTERVAL, OVER A PERIOD OF 3 MONTHS

REACTIONS (2)
  - DEPRESSION [None]
  - SENILE DEMENTIA [None]
